FAERS Safety Report 5580801-7 (Version None)
Quarter: 2008Q1

REPORT INFORMATION
  Report Type: 
  Country: None (occurrence: None)
  Receive Date: 20080103
  Receipt Date: 20071221
  Transmission Date: 20080703
  Serious: Yes (Hospitalization)
  Sender: FDA-Public Use
  Company Number: FR-BOEHRINGER INGELHEIM PHARMACEUTICALS, INC.-2007-FF-01157FF

PATIENT
  Sex: Female

DRUGS (12)
  1. ATROVENT [Suspect]
     Route: 055
     Dates: start: 20071010, end: 20071031
  2. IMOVANE [Concomitant]
  3. SEROPRAM [Concomitant]
     Route: 048
     Dates: start: 20071011, end: 20071103
  4. BRICANYL [Concomitant]
     Route: 055
     Dates: start: 20071010, end: 20071031
  5. BECOTIDE [Concomitant]
  6. CORDARONE [Concomitant]
  7. HEMIGOXINE [Concomitant]
  8. HALDOL [Concomitant]
  9. DEROXAT [Concomitant]
  10. SERETIDE DISKUS [Concomitant]
  11. COUMADIN [Concomitant]
  12. CACIT D3 [Concomitant]

REACTIONS (1)
  - TREMOR [None]
